FAERS Safety Report 7442093-3 (Version None)
Quarter: 2011Q2

REPORT INFORMATION
  Report Type: 
  Country: None (occurrence: None)
  Receive Date: 20110428
  Receipt Date: 20101102
  Transmission Date: 20111010
  Serious: Yes (Hospitalization, Other)
  Sender: FDA-Public Use
  Company Number: US-BAYER-201029761NA

PATIENT
  Age: 50 Year
  Sex: Female
  Weight: 68.027 kg

DRUGS (3)
  1. SYNTHROID [Concomitant]
     Dosage: UNK
     Dates: start: 19990101
  2. YASMIN [Suspect]
     Indication: CONTRACEPTION
     Dosage: UNK UNK, QD
     Route: 048
     Dates: start: 20040601, end: 20041101
  3. LEVOXYL [Concomitant]
     Dosage: 150 MCG/24HR, UNK
     Dates: start: 20040909

REACTIONS (2)
  - THROMBOSIS [None]
  - DEEP VEIN THROMBOSIS [None]
